FAERS Safety Report 13792573 (Version 3)
Quarter: 2017Q3

REPORT INFORMATION
  Report Type: Report from Study
  Country: None (occurrence: NL)
  Receive Date: 20170725
  Receipt Date: 20170904
  Transmission Date: 20171127
  Serious: Yes (Hospitalization)
  Sender: FDA-Public Use
  Company Number: NL-ABBVIE-17P-114-2045418-00

PATIENT
  Age: 69 Year
  Sex: Female

DRUGS (2)
  1. DUODOPA [Suspect]
     Active Substance: CARBIDOPA\LEVODOPA
     Dosage: REDUCED THE CONTINUOUS DOSE WITH 0.5ML
     Route: 050
     Dates: start: 20150630
  2. DUODOPA [Suspect]
     Active Substance: CARBIDOPA\LEVODOPA
     Indication: PARKINSON^S DISEASE
     Dosage: MD: 12.5, CD: 3.6, ED: 2.0
     Route: 050
     Dates: start: 20150630

REACTIONS (4)
  - Hypotension [Not Recovered/Not Resolved]
  - Dyskinesia [Recovering/Resolving]
  - Blood pressure abnormal [Recovered/Resolved]
  - Dizziness [Recovered/Resolved]

NARRATIVE: CASE EVENT DATE: 20170717
